FAERS Safety Report 4513745-X (Version None)
Quarter: 2004Q4

REPORT INFORMATION
  Report Type: 
  Country: None (occurrence: None)
  Receive Date: 20041124
  Receipt Date: 20041116
  Transmission Date: 20050328
  Serious: Yes (Hospitalization)
  Sender: FDA-Public Use
  Company Number: HQWYE557919NOV04

PATIENT
  Age: 62 Year
  Sex: Female

DRUGS (4)
  1. EFFEXOR [Suspect]
     Indication: DEPRESSION
     Dosage: 75 MG 1X PER 1 DAY
  2. BUPROPION HCL [Suspect]
     Indication: DEPRESSION
     Dosage: 300 MG, 1X PER 1 DAY
  3. SERTRALINE HCL [Suspect]
     Indication: DEPRESSION
     Dosage: 50 MG 1X PER 1 DAY
  4. PIRACETAM (PIRACETAM) [Concomitant]

REACTIONS (18)
  - AGITATION [None]
  - CEREBRAL ATROPHY [None]
  - CLUMSINESS [None]
  - CONFUSIONAL STATE [None]
  - DEPRESSED LEVEL OF CONSCIOUSNESS [None]
  - DIARRHOEA [None]
  - DRUG INTERACTION [None]
  - ELECTROCARDIOGRAM QT PROLONGED [None]
  - FAECAL INCONTINENCE [None]
  - GAIT DISTURBANCE [None]
  - HALLUCINATIONS, MIXED [None]
  - HYPERHIDROSIS [None]
  - INSOMNIA [None]
  - LETHARGY [None]
  - MYOCLONUS [None]
  - SEROTONIN SYNDROME [None]
  - TRANSAMINASES INCREASED [None]
  - URINARY INCONTINENCE [None]
